FAERS Safety Report 14284992 (Version 3)
Quarter: 2018Q2

REPORT INFORMATION
  Report Type: Report from Study
  Country: BR (occurrence: BR)
  Receive Date: 20171214
  Receipt Date: 20180606
  Transmission Date: 20180711
  Serious: Yes (Other)
  Sender: FDA-Public Use
  Company Number: PHHY2017BR183961

PATIENT
  Age: 23 Year
  Sex: Female
  Weight: 67 kg

DRUGS (3)
  1. OMNITROPE [Suspect]
     Active Substance: SOMATROPIN
     Indication: GROWTH HORMONE DEFICIENCY
     Dosage: 1 MG, QD
     Route: 058
     Dates: start: 20171201, end: 20171201
  2. OMNITROPE [Suspect]
     Active Substance: SOMATROPIN
     Indication: HYPOGLYCAEMIA
  3. INSULIN REGULAR [Concomitant]
     Active Substance: INSULIN NOS
     Indication: BLOOD GLUCOSE INCREASED
     Dosage: UNK
     Route: 065
     Dates: start: 20171201, end: 20171201

REACTIONS (5)
  - Incorrect dose administered by device [Unknown]
  - Blood glucose increased [Recovered/Resolved]
  - Product use in unapproved indication [Unknown]
  - Loss of consciousness [Recovered/Resolved]
  - Malaise [Unknown]

NARRATIVE: CASE EVENT DATE: 20171201
